FAERS Safety Report 7450508-X (Version None)
Quarter: 2011Q2

REPORT INFORMATION
  Report Type: 
  Country: None (occurrence: None)
  Receive Date: 20110429
  Receipt Date: 20110429
  Transmission Date: 20111010
  Serious: Yes (Hospitalization)
  Sender: FDA-Public Use
  Company Number: None

PATIENT
  Sex: Female
  Weight: 50 kg

DRUGS (1)
  1. DILTIAZEM HCL [Suspect]
     Indication: MITRAL VALVE INCOMPETENCE
     Dosage: 120 MG QD PO
     Route: 048
     Dates: start: 19980101

REACTIONS (1)
  - BLOOD PRESSURE DECREASED [None]
